FAERS Safety Report 9728450 (Version 1)
Quarter: 2013Q4

REPORT INFORMATION
  Report Type: Spontaneous
  Country: US (occurrence: US)
  Receive Date: 20131204
  Receipt Date: 20131204
  Transmission Date: 20140711
  Serious: Yes (Death)
  Sender: FDA-Public Use
  Company Number: US-ALKERMES INC.-ALK-2013-002242

PATIENT
  Sex: 0

DRUGS (2)
  1. VIVITROL [Suspect]
     Indication: ALCOHOLISM
     Dosage: 380 MG, UNK
     Route: 030
     Dates: start: 201211
  2. NALTREXONE HCL [Suspect]
     Indication: ALCOHOLISM
     Dosage: UNK
     Dates: start: 2013

REACTIONS (1)
  - Death [Fatal]
